FAERS Safety Report 8861315 (Version 1)
Quarter: 2012Q4

REPORT INFORMATION
  Report Type: 
  Country: US (occurrence: US)
  Receive Date: 20121026
  Receipt Date: 20121026
  Transmission Date: 20130627
  Serious: No
  Sender: FDA-Public Use
  Company Number: US-PFIZER INC-2012262302

PATIENT
  Age: 61 Year
  Sex: Female
  Weight: 79.37 kg

DRUGS (2)
  1. PREMARIN VAGINAL CREAM [Suspect]
     Indication: HORMONE REPLACEMENT THERAPY
     Dosage: 0.5 g, 3x/week
     Route: 067
     Dates: start: 20121001, end: 201210
  2. QVAR [Concomitant]
     Indication: ASTHMA
     Dosage: (1 puff in morning and 1 puff in night), 2x/day

REACTIONS (6)
  - Nervous system disorder [Recovering/Resolving]
  - Pruritus generalised [Recovering/Resolving]
  - Headache [Unknown]
  - Fatigue [Unknown]
  - Feeling abnormal [Unknown]
  - Speech disorder [Unknown]
